FAERS Safety Report 6189952-X (Version None)
Quarter: 2009Q2

REPORT INFORMATION
  Report Type: 
  Country: None (occurrence: None)
  Receive Date: 20090514
  Receipt Date: 20090505
  Transmission Date: 20091009
  Serious: Yes (Other)
  Sender: FDA-Public Use
  Company Number: PHEH2009US04429

PATIENT
  Sex: Female

DRUGS (1)
  1. ENABLEX [Suspect]
     Dosage: 15 MG, UNK

REACTIONS (3)
  - BLADDER DILATATION [None]
  - BLADDER STENOSIS [None]
  - DYSURIA [None]
